FAERS Safety Report 24348372 (Version 2)
Quarter: 2024Q4

REPORT INFORMATION
  Report Type: Spontaneous
  Country: US (occurrence: US)
  Receive Date: 20240923
  Receipt Date: 20241217
  Transmission Date: 20250115
  Serious: Yes (Hospitalization, Other)
  Sender: SPECGX
  Company Number: US-SPECGX-T202401876

PATIENT
  Age: 74 Year
  Sex: Male

DRUGS (9)
  1. POSACONAZOLE [Suspect]
     Active Substance: POSACONAZOLE
     Indication: Anti-infective therapy
     Dosage: UNK
     Route: 065
  2. MYCOPHENOLATE MOFETIL [Suspect]
     Active Substance: MYCOPHENOLATE MOFETIL
     Indication: Immunosuppression
     Dosage: 360 MILLIGRAM, BID
     Route: 065
  3. MYCOPHENOLATE MOFETIL [Suspect]
     Active Substance: MYCOPHENOLATE MOFETIL
     Dosage: 180 MILLIGRAM, BID
     Route: 065
  4. VALGANCICLOVIR [Suspect]
     Active Substance: VALGANCICLOVIR
     Indication: Anti-infective therapy
     Dosage: UNK
     Route: 065
  5. AZITHROMYCIN [Suspect]
     Active Substance: AZITHROMYCIN
     Indication: Anti-infective therapy
     Dosage: UNK
     Route: 065
  6. ATOVAQUONE [Suspect]
     Active Substance: ATOVAQUONE
     Indication: Anti-infective therapy
     Dosage: UNK
     Route: 065
  7. PREDNISONE [Suspect]
     Active Substance: PREDNISONE
     Indication: Immunosuppression
     Dosage: 5 MILLIGRAM
     Route: 065
  8. TACROLIMUS [Suspect]
     Active Substance: TACROLIMUS
     Indication: Immunosuppression
     Dosage: 0.75 MILLIGRAM
     Route: 065
  9. TACROLIMUS [Suspect]
     Active Substance: TACROLIMUS
     Dosage: 1 MILLIGRAM
     Route: 065

REACTIONS (14)
  - Pancytopenia [Recovering/Resolving]
  - Presyncope [Recovering/Resolving]
  - Folate deficiency [Recovered/Resolved]
  - Haematoma [Recovering/Resolving]
  - Deep vein thrombosis [Recovering/Resolving]
  - Atrial fibrillation [Recovering/Resolving]
  - Pneumonia [Recovering/Resolving]
  - Dehydration [Recovering/Resolving]
  - Haemoptysis [Recovering/Resolving]
  - Early satiety [Recovering/Resolving]
  - Pulmonary artery stenosis [Recovering/Resolving]
  - Pericardial effusion [Recovering/Resolving]
  - Transplant rejection [Recovering/Resolving]
  - Transfusion [Unknown]
